FAERS Safety Report 15962772 (Version 2)
Quarter: 2019Q1

REPORT INFORMATION
  Report Type: Report from Study
  Country: US (occurrence: US)
  Receive Date: 20190214
  Receipt Date: 20190308
  Transmission Date: 20190417
  Serious: Yes (Other)
  Sender: FDA-Public Use
  Company Number: US-PFIZER INC-2019048917

PATIENT
  Age: 72 Year
  Sex: Female

DRUGS (3)
  1. ANASTROZOLE. [Concomitant]
     Active Substance: ANASTROZOLE
     Dosage: UNK
  2. IBRANCE [Suspect]
     Active Substance: PALBOCICLIB
     Dosage: 100 MG, CYCLIC(DAILY, 21 DAYS ON AND 7 DAYS OFF)
     Route: 048
     Dates: start: 20181207
  3. IBRANCE [Suspect]
     Active Substance: PALBOCICLIB
     Indication: BREAST CANCER
     Dosage: 125 MG, UNK
     Dates: start: 20181207

REACTIONS (12)
  - Productive cough [Unknown]
  - Bone marrow failure [Unknown]
  - Tachycardia [Unknown]
  - Leukopenia [Not Recovered/Not Resolved]
  - Cachexia [Unknown]
  - Nausea [Unknown]
  - Stomatitis [Unknown]
  - Visual impairment [Recovered/Resolved]
  - Eye movement disorder [Recovered/Resolved]
  - Neuropathy peripheral [Unknown]
  - Product use issue [Unknown]
  - Decreased appetite [Unknown]
